FAERS Safety Report 12800584 (Version 1)
Quarter: 2016Q3

REPORT INFORMATION
  Report Type: Report from Study
  Country: NL (occurrence: NL)
  Receive Date: 20160930
  Receipt Date: 20160930
  Transmission Date: 20161109
  Serious: Yes (Other)
  Sender: FDA-Public Use
  Company Number: NL-ABBVIE-16P-114-1541098-00

PATIENT
  Sex: Female
  Weight: 80 kg

DRUGS (1)
  1. LUCRIN DEPOT [Suspect]
     Active Substance: LEUPROLIDE ACETATE
     Indication: PRODUCT USED FOR UNKNOWN INDICATION
     Route: 030
     Dates: start: 20151020

REACTIONS (3)
  - Petit mal epilepsy [Not Recovered/Not Resolved]
  - Hot flush [Recovering/Resolving]
  - Hyperhidrosis [Recovered/Resolved with Sequelae]
